FAERS Safety Report 9251550 (Version 1)
Quarter: 2013Q2

REPORT INFORMATION
  Report Type: Spontaneous
  Country: US (occurrence: US)
  Receive Date: 20130424
  Receipt Date: 20130424
  Transmission Date: 20140414
  Serious: No
  Sender: FDA-Public Use
  Company Number: US-PFIZER INC-2013125437

PATIENT
  Age: 79 Year
  Sex: Male
  Weight: 80.73 kg

DRUGS (6)
  1. PROTONIX [Suspect]
     Indication: DYSPEPSIA
     Dosage: 40 MG, 2X/DAY
     Dates: start: 201304, end: 201304
  2. PREVACID [Suspect]
     Dosage: UNK
  3. PRIMATENE [Concomitant]
     Dosage: UNK
  4. COUMADIN [Concomitant]
     Indication: CARDIAC DISORDER
     Dosage: 5 MG, DAILY
  5. VERAPAMIL [Concomitant]
     Indication: CARDIAC DISORDER
     Dosage: 240 MG, DAILY
  6. ESCITALOPRAM [Concomitant]
     Dosage: 10 MG, DAILY

REACTIONS (1)
  - Drug ineffective [Unknown]
